FAERS Safety Report 17646803 (Version 1)
Quarter: 2020Q2

REPORT INFORMATION
  Report Type: Report from Study
  Country: None (occurrence: CA)
  Receive Date: 20200408
  Receipt Date: 20200408
  Transmission Date: 20200713
  Serious: Yes (Other)
  Sender: FDA-Public Use
  Company Number: CA-ABBVIE-20K-028-3298128-00

PATIENT
  Age: 41 Year
  Sex: Male
  Weight: 91 kg

DRUGS (1)
  1. HUMIRA [Suspect]
     Active Substance: ADALIMUMAB
     Indication: PSORIASIS
     Route: 058
     Dates: start: 20140402

REACTIONS (9)
  - Emotional distress [Unknown]
  - Chest discomfort [Unknown]
  - Femoral neck fracture [Unknown]
  - Chronic obstructive pulmonary disease [Unknown]
  - Arthropathy [Unknown]
  - Sinus tachycardia [Unknown]
  - Fall [Unknown]
  - Osteonecrosis [Unknown]
  - Poor dental condition [Unknown]

NARRATIVE: CASE EVENT DATE: 201908
